FAERS Safety Report 6088826-2 (Version None)
Quarter: 2009Q1

REPORT INFORMATION
  Report Type: 
  Country: None (occurrence: None)
  Receive Date: 20090219
  Receipt Date: 20090209
  Transmission Date: 20090719
  Serious: Yes (Hospitalization)
  Sender: FDA-Public Use
  Company Number: DSA_33194_2009

PATIENT
  Sex: Female

DRUGS (4)
  1. LORAZEPAM [Suspect]
     Dosage: (2 MG 1X, ORAL)
     Route: 048
     Dates: start: 20090206, end: 20090206
  2. TREVILOR (TREVILOR RETARD - VENLAFAXINE HYDROCHLORIDE ) (NOT SPECIFIED [Suspect]
     Dosage: (150 MG 1X, ORAL)
     Route: 048
     Dates: start: 20090206, end: 20090206
  3. ALCOHOL (ALCOHOL - ETHANOL ) [Suspect]
     Dosage: (AMOUNT ORAL)
     Route: 048
     Dates: start: 20090206, end: 20090206
  4. QUILONORM /00033702/ (QUILONORM RETARD - LITHIUM CARBONATE) (NOT SPECI [Suspect]
     Dosage: (9900 MG 1X, ORAL)
     Route: 048
     Dates: start: 20090206, end: 20090206

REACTIONS (6)
  - DIPLOPIA [None]
  - DIZZINESS [None]
  - HAEMODIALYSIS [None]
  - INTENTIONAL OVERDOSE [None]
  - SUICIDE ATTEMPT [None]
  - VOMITING [None]
